FAERS Safety Report 4306985-6 (Version None)
Quarter: 2004Q1

REPORT INFORMATION
  Report Type: 
  Country: None (occurrence: None)
  Receive Date: 20040227
  Receipt Date: 20040122
  Transmission Date: 20041129
  Serious: Yes (Hospitalization)
  Sender: FDA-Public Use
  Company Number: US-BRISTOL-MYERS SQUIBB COMPANY-12484606

PATIENT
  Age: 80 Year
  Sex: Female
  Weight: 29 kg

DRUGS (11)
  1. TAXOL [Suspect]
     Indication: OVARIAN CANCER
     Dosage: 135 MG/M^2
     Route: 042
     Dates: start: 20040108, end: 20040108
  2. CARBOPLATIN [Suspect]
     Indication: OVARIAN CANCER
     Route: 042
     Dates: start: 20040108, end: 20040108
  3. DECADRON [Concomitant]
     Indication: PREMEDICATION
     Route: 042
     Dates: start: 20040107, end: 20040107
  4. BENADRYL [Concomitant]
     Indication: PREMEDICATION
     Route: 042
     Dates: start: 20040107, end: 20040107
  5. CIMETIDINE HCL [Concomitant]
     Indication: PREMEDICATION
     Dates: start: 20040107, end: 20040107
  6. KYTRIL [Concomitant]
     Indication: PREMEDICATION
     Dates: start: 20040107, end: 20040107
  7. LISINOPRIL [Concomitant]
  8. HYDROCHLOROTHIAZIDE [Concomitant]
     Route: 048
  9. TOPROL-XL [Concomitant]
     Route: 048
  10. ASPIRIN [Concomitant]
     Route: 048
  11. TYLENOL (CAPLET) [Concomitant]

REACTIONS (3)
  - ANAPHYLACTIC SHOCK [None]
  - BILATERAL HYDRONEPHROSIS [None]
  - URINARY TRACT INFECTION [None]
